FAERS Safety Report 4415468-4 (Version None)
Quarter: 2004Q2

REPORT INFORMATION
  Report Type: 
  Country: None (occurrence: None)
  Receive Date: 20040630
  Receipt Date: 20031104
  Transmission Date: 20050107
  Serious: Yes (Other)
  Sender: FDA-Public Use
  Company Number: 2003116548

PATIENT
  Age: 69 Year
  Sex: Female
  Weight: 53.5244 kg

DRUGS (4)
  1. ZOLOFT [Suspect]
     Indication: POST-TRAUMATIC STRESS DISORDER
     Dosage: 25 MG (DAILY), ORAL
     Route: 048
     Dates: start: 20020101
  2. COUMADIN [Concomitant]
  3. ATENOLOL [Concomitant]
  4. HYDROCHLOROTHIAZIDE [Concomitant]

REACTIONS (1)
  - GLAUCOMA [None]
